FAERS Safety Report 25119857 (Version 1)
Quarter: 2025Q1

REPORT INFORMATION
  Report Type: Spontaneous
  Country: US (occurrence: US)
  Receive Date: 20250325
  Receipt Date: 20250325
  Transmission Date: 20250408
  Serious: No
  Sender: KYOWA
  Company Number: US-KYOWAKIRIN-2025KK005364

PATIENT

DRUGS (2)
  1. CRYSVITA [Suspect]
     Active Substance: BUROSUMAB-TWZA
     Indication: Product used for unknown indication
     Dosage: 80 MG, 1X/2 WEEKS (60 + 20 - TOTAL 80MG)
     Route: 058
  2. CRYSVITA [Suspect]
     Active Substance: BUROSUMAB-TWZA
     Indication: Product used for unknown indication
     Dosage: 80 MG, 1X/2 WEEKS (60 + 20 - TOTAL 80MG)
     Route: 058

REACTIONS (2)
  - Malaise [Unknown]
  - Streptococcal infection [Unknown]
